FAERS Safety Report 9913484 (Version 1)
Quarter: 2014Q1

REPORT INFORMATION
  Report Type: Spontaneous
  Country: US (occurrence: None)
  Receive Date: 20140218
  Receipt Date: 20140218
  Transmission Date: 20141002
  Serious: Yes (Other)
  Sender: FDA-Public Use
  Company Number: None

PATIENT
  Age: 26 Year
  Sex: Female

DRUGS (3)
  1. BENLYSTA [Suspect]
     Route: 042
     Dates: start: 20131018
  2. IMURAN [Concomitant]
  3. HYDROXYCHLOROQUIN [Concomitant]

REACTIONS (2)
  - Fatigue [None]
  - Heart rate increased [None]
